FAERS Safety Report 12111106 (Version 1)
Quarter: 2016Q1

REPORT INFORMATION
  Report Type: Spontaneous
  Country: US (occurrence: US)
  Receive Date: 20160224
  Receipt Date: 20160224
  Transmission Date: 20160526
  Serious: No
  Sender: FDA-Public Use
  Company Number: US-BAYER-2016-032769

PATIENT
  Age: 28 Year
  Sex: Female

DRUGS (1)
  1. MIRENA [Suspect]
     Active Substance: LEVONORGESTREL
     Indication: CONTRACEPTION
     Dosage: 20 MCG/24HR, CONT
     Route: 015
     Dates: start: 201502

REACTIONS (9)
  - Feelings of worthlessness [None]
  - Dyspnoea [None]
  - Dyspepsia [None]
  - Flushing [None]
  - Contusion [None]
  - Chest discomfort [None]
  - Palpitations [None]
  - Fall [None]
  - Depression [None]
